FAERS Safety Report 5861080-X (Version None)
Quarter: 2008Q3

REPORT INFORMATION
  Report Type: 
  Country: None (occurrence: None)
  Receive Date: 20080827
  Receipt Date: 20080212
  Transmission Date: 20090109
  Serious: No
  Sender: FDA-Public Use
  Company Number: US-ABBOTT-08P-163-0438115-00

PATIENT
  Sex: Male
  Weight: 116.4 kg

DRUGS (1)
  1. NIASPAN [Suspect]
     Indication: BLOOD CHOLESTEROL INCREASED
     Dates: start: 20080101, end: 20080201

REACTIONS (4)
  - FLUSHING [None]
  - HEADACHE [None]
  - MYALGIA [None]
  - WHITE BLOOD CELL COUNT INCREASED [None]
